FAERS Safety Report 13905435 (Version 7)
Quarter: 2019Q4

REPORT INFORMATION
  Report Type: Report from Study
  Country: US (occurrence: US)
  Receive Date: 20170825
  Receipt Date: 20191105
  Transmission Date: 20200122
  Serious: Yes (Other)
  Sender: FDA-Public Use
  Company Number: PHHY2017US122389

PATIENT
  Age: 38 Year
  Sex: Male

DRUGS (2)
  1. GILENYA [Suspect]
     Active Substance: FINGOLIMOD HYDROCHLORIDE
     Indication: MULTIPLE SCLEROSIS
     Dosage: UNK, QD
     Route: 048
  2. SOLU-MEDROL [Concomitant]
     Active Substance: METHYLPREDNISOLONE SODIUM SUCCINATE
     Indication: MULTIPLE SCLEROSIS RELAPSE
     Dosage: UNK
     Route: 065
     Dates: start: 20170808, end: 20170812

REACTIONS (10)
  - Migraine [Unknown]
  - Muscular weakness [Unknown]
  - Paraesthesia [Unknown]
  - Dizziness [Recovered/Resolved]
  - Fatigue [Unknown]
  - Burning sensation [Unknown]
  - Nasopharyngitis [Recovered/Resolved]
  - Syncope [Recovered/Resolved]
  - Hypoaesthesia [Unknown]
  - Fall [Recovered/Resolved]

NARRATIVE: CASE EVENT DATE: 20170731
